FAERS Safety Report 4700419-5 (Version None)
Quarter: 2005Q2

REPORT INFORMATION
  Report Type: 
  Country: None (occurrence: None)
  Receive Date: 20050627
  Receipt Date: 20050302
  Transmission Date: 20051028
  Serious: Yes (Hospitalization)
  Sender: FDA-Public Use
  Company Number: JP-ROCHE-397828

PATIENT
  Age: 6 Year
  Sex: Female

DRUGS (5)
  1. TAMIFLU [Suspect]
     Route: 048
     Dates: start: 20050224, end: 20050225
  2. ASVERIN [Concomitant]
     Indication: DRUG USE FOR UNKNOWN INDICATION
     Route: 048
     Dates: start: 20050224, end: 20050225
  3. PERIACTIN [Concomitant]
     Indication: DRUG USE FOR UNKNOWN INDICATION
     Route: 048
     Dates: start: 20050224, end: 20050225
  4. CRAVIT [Concomitant]
     Indication: DRUG USE FOR UNKNOWN INDICATION
     Route: 031
     Dates: start: 20050224, end: 20050225
  5. ACETAMINOPHEN [Concomitant]
     Indication: DRUG USE FOR UNKNOWN INDICATION
     Route: 048
     Dates: start: 20050224, end: 20050225

REACTIONS (3)
  - CONVULSION [None]
  - DEHYDRATION [None]
  - HALLUCINATION [None]
